FAERS Safety Report 25942923 (Version 1)
Quarter: 2025Q4

REPORT INFORMATION
  Report Type: Spontaneous
  Country: US (occurrence: US)
  Receive Date: 20251021
  Receipt Date: 20251021
  Transmission Date: 20260118
  Serious: No
  Sender: SOLENO THERAPEUTICS
  Company Number: US-SOLENO THERAPEUTICS, INC.-SOL2025000323

PATIENT
  Age: 8 Year
  Sex: Female
  Weight: 49.887 kg

DRUGS (1)
  1. VYKAT XR [Suspect]
     Active Substance: DIAZOXIDE CHOLINE
     Indication: Prader-Willi syndrome
     Dosage: 75 MILLIGRAM, QD
     Route: 065
     Dates: start: 20250803

REACTIONS (2)
  - Abdominal discomfort [Unknown]
  - Thirst [Unknown]

NARRATIVE: CASE EVENT DATE: 20250801
